FAERS Safety Report 19480862 (Version 1)
Quarter: 2021Q3

REPORT INFORMATION
  Report Type: Spontaneous
  Country: US (occurrence: US)
  Receive Date: 20210701
  Receipt Date: 20210701
  Transmission Date: 20211014
  Serious: No
  Sender: FDA-Public Use
  Company Number: US-TEVA-2021-US-1925674

PATIENT
  Age: 90 Year
  Sex: Female
  Weight: 36.29 kg

DRUGS (6)
  1. QVAR REDIHALER [Suspect]
     Active Substance: BECLOMETHASONE DIPROPIONATE
     Indication: PULMONARY FIBROSIS
     Dosage: 1 PUFF (80MCG) ONCE DAILY PRN
     Route: 065
     Dates: start: 2020
  2. MAXZIDE [Concomitant]
     Active Substance: HYDROCHLOROTHIAZIDE\TRIAMTERENE
     Route: 065
  3. MULTIVITAMIN [Concomitant]
     Active Substance: VITAMINS
     Route: 065
  4. CALCIUM PLUS VITAMIN D [Concomitant]
     Active Substance: CALCIUM\VITAMIN D
     Route: 065
  5. QVAR REDIHALER [Suspect]
     Active Substance: BECLOMETHASONE DIPROPIONATE
     Indication: VASCULAR GRAFT
  6. LOPRESSOR [Concomitant]
     Active Substance: METOPROLOL TARTRATE
     Route: 065

REACTIONS (6)
  - Drug ineffective [Unknown]
  - Product substitution issue [Unknown]
  - Device use issue [Unknown]
  - Product use in unapproved indication [Unknown]
  - Device malfunction [Unknown]
  - Dyspnoea [Unknown]
